FAERS Safety Report 16782542 (Version 2)
Quarter: 2019Q4

REPORT INFORMATION
  Report Type: Report from Study
  Country: JP (occurrence: JP)
  Receive Date: 20190906
  Receipt Date: 20191016
  Transmission Date: 20200122
  Serious: Yes (Hospitalization)
  Sender: FDA-Public Use
  Company Number: JP-REGENERON PHARMACEUTICALS, INC.-2019-51270

PATIENT

DRUGS (23)
  1. HYDROCORTISONE SODIUM SUCCINATE [Concomitant]
     Active Substance: HYDROCORTISONE SODIUM SUCCINATE
     Dosage: 100 MG, QD
     Route: 042
     Dates: start: 20190819, end: 20190819
  2. SITAFLOXACIN ANHYDROUS [Concomitant]
     Indication: PNEUMONIA BACTERIAL
     Dosage: 100 MG, BID
     Route: 048
     Dates: start: 20190828, end: 20190830
  3. ESOMEPRAZOLE MAGNESIUM DIHYDRATE [Concomitant]
     Active Substance: ESOMEPRAZOLE MAGNESIUM
     Indication: GASTROOESOPHAGEAL REFLUX DISEASE
     Dosage: 20 MG, QD
     Route: 048
  4. GATIFLOXACIN. [Concomitant]
     Active Substance: GATIFLOXACIN
     Indication: AGE-RELATED MACULAR DEGENERATION
     Dosage: UNK, QID
     Route: 047
     Dates: start: 20190818, end: 20190821
  5. ACETAMINOPHEN. [Concomitant]
     Active Substance: ACETAMINOPHEN
     Indication: PNEUMONIA BACTERIAL
     Dosage: 200 MG, PRN
     Route: 048
     Dates: start: 20190827
  6. MOXIFLOXACIN HYDROCHLORIDE. [Concomitant]
     Active Substance: MOXIFLOXACIN HYDROCHLORIDE
     Indication: AGE-RELATED MACULAR DEGENERATION
     Dosage: UNK, QID
     Route: 047
     Dates: start: 20190822, end: 20190824
  7. CEMIPLIMAB [Suspect]
     Active Substance: CEMIPLIMAB
     Indication: LUNG ADENOCARCINOMA STAGE IV
     Dosage: 350 MG, Q3W
     Route: 042
     Dates: start: 20190802
  8. ZOPICLONE [Concomitant]
     Active Substance: ZOPICLONE
     Indication: INSOMNIA
     Dosage: 10 MG, QD
     Route: 048
     Dates: start: 20190801, end: 20190822
  9. SUVOREXANT. [Concomitant]
     Active Substance: SUVOREXANT
     Indication: INSOMNIA
     Dosage: 15 ?G, QD
     Route: 048
     Dates: start: 20190826
  10. TIOTROPIUM BROMIDE MONOHYDRATE [Concomitant]
     Active Substance: TIOTROPIUM BROMIDE MONOHYDRATE
     Indication: CHRONIC OBSTRUCTIVE PULMONARY DISEASE
     Dosage: 5 ?G, QD
     Route: 050
     Dates: start: 20190801
  11. HYDROCORTISONE SODIUM SUCCINATE [Concomitant]
     Active Substance: HYDROCORTISONE SODIUM SUCCINATE
     Indication: MALAISE
     Dosage: 100 MG, QD
     Route: 042
     Dates: start: 20190814, end: 20190814
  12. HYDROCORTISONE SODIUM SUCCINATE [Concomitant]
     Active Substance: HYDROCORTISONE SODIUM SUCCINATE
     Dosage: 100 MG, QD
     Route: 042
     Dates: start: 20190817, end: 20190817
  13. HYDROCORTISONE SODIUM SUCCINATE [Concomitant]
     Active Substance: HYDROCORTISONE SODIUM SUCCINATE
     Dosage: 100 MG, QD
     Route: 042
     Dates: start: 20190820, end: 20190820
  14. HYDROCORTISONE SODIUM SUCCINATE [Concomitant]
     Active Substance: HYDROCORTISONE SODIUM SUCCINATE
     Dosage: 100 MG, QD
     Route: 042
     Dates: start: 20190822, end: 20190822
  15. TENELIGLIPTIN HYDROBROMIDE [Concomitant]
     Active Substance: TENELIGLIPTIN HYDROBROMIDE ANHYDROUS
     Indication: DIABETES MELLITUS
     Dosage: 1 TABLET, QD
     Route: 048
  16. MAGNESIUM OXIDE. [Concomitant]
     Active Substance: MAGNESIUM OXIDE
     Indication: CONSTIPATION
     Dosage: 330 MG, AS NECESSARY
     Route: 048
     Dates: start: 20190801
  17. HYDROCORTISONE BUTYRATE. [Concomitant]
     Active Substance: HYDROCORTISONE BUTYRATE
     Indication: DERMATITIS ACNEIFORM
     Dosage: UNK UNK, BID
     Route: 062
     Dates: start: 20190809
  18. DIMEMORFAN PHOSPHATE [Concomitant]
     Active Substance: DIMEMORFAN PHOSPHATE
     Indication: LUNG NEOPLASM MALIGNANT
     Dosage: 30 ?G, TID
     Route: 048
     Dates: start: 20190716, end: 20190803
  19. PANVITAN                           /05664201/ [Concomitant]
     Active Substance: VITAMINS
     Indication: LUNG NEOPLASM MALIGNANT
     Dosage: 1 G, QD
     Route: 048
     Dates: start: 20190717, end: 20190802
  20. RAMELTEON [Concomitant]
     Active Substance: RAMELTEON
     Indication: INSOMNIA
     Dosage: 8 MG, QD
     Route: 048
     Dates: start: 20190826, end: 20190901
  21. DEXTROMETHORPHAN HYDROBROMIDE. [Concomitant]
     Active Substance: DEXTROMETHORPHAN HYDROBROMIDE
     Indication: LUNG NEOPLASM MALIGNANT
     Dosage: 45 MG, TID
     Route: 048
     Dates: start: 20190616, end: 20190803
  22. SODIUM GUALENATE HYDRATE [Concomitant]
     Active Substance: SODIUM GUALENATE MONOHYDRATE
     Indication: INFECTION PROPHYLAXIS
     Dosage: UNK UNK, QID
     Route: 050
     Dates: start: 20190723
  23. AFLIBERCEPT [Concomitant]
     Active Substance: AFLIBERCEPT
     Indication: AGE-RELATED MACULAR DEGENERATION
     Dosage: 0.05 ML, QD
     Route: 031
     Dates: start: 20190821, end: 20190821

REACTIONS (1)
  - Pneumonia bacterial [Recovering/Resolving]

NARRATIVE: CASE EVENT DATE: 20190830
